FAERS Safety Report 11885416 (Version 1)
Quarter: 2015Q4

REPORT INFORMATION
  Report Type: Spontaneous
  Country: US (occurrence: None)
  Receive Date: 20151231
  Receipt Date: 20151231
  Transmission Date: 20160305
  Serious: Yes (Other)
  Sender: FDA-Public Use
  Company Number: None

PATIENT
  Age: 49 Year
  Sex: Female
  Weight: 67.13 kg

DRUGS (2)
  1. ACCLEAN CHLORHEXIDINE GLUCONATE 0.12% ORAL RINSE [Suspect]
     Active Substance: CHLORHEXIDINE GLUCONATE
     Indication: PHARYNGITIS STREPTOCOCCAL
     Dosage: PER LABEL, TWICE DAILY, MOUTH WASH
     Dates: start: 20151229, end: 20151229
  2. ADVIL [Concomitant]
     Active Substance: IBUPROFEN

REACTIONS (6)
  - Oral mucosal exfoliation [None]
  - Oral discomfort [None]
  - Noninfective gingivitis [None]
  - Burning sensation [None]
  - Stomatitis [None]
  - Tongue ulceration [None]

NARRATIVE: CASE EVENT DATE: 20151229
